FAERS Safety Report 15989148 (Version 2)
Quarter: 2019Q1

REPORT INFORMATION
  Report Type: Report from Study
  Country: IT (occurrence: IT)
  Receive Date: 20190221
  Receipt Date: 20190302
  Transmission Date: 20190418
  Serious: Yes (Other)
  Sender: FDA-Public Use
  Company Number: IT-ACCORD-108509

PATIENT
  Age: 35 Year
  Sex: Male

DRUGS (3)
  1. SEROQUEL [Suspect]
     Active Substance: QUETIAPINE FUMARATE
     Indication: BIPOLAR DISORDER
     Dosage: 300 MG FILM-COATED TABLETS?200 MG PROLONGED-RELEASE TABLETS
     Route: 048
     Dates: start: 20171103, end: 20171104
  2. LAMOTRIGINE. [Suspect]
     Active Substance: LAMOTRIGINE
     Indication: BIPOLAR DISORDER
     Route: 048
     Dates: start: 20171103, end: 20171104
  3. ESCITALOPRAM [Suspect]
     Active Substance: ESCITALOPRAM OXALATE
     Indication: BIPOLAR DISORDER
     Route: 048
     Dates: start: 20171103, end: 20171104

REACTIONS (4)
  - Apathy [Recovering/Resolving]
  - Anhedonia [Recovering/Resolving]
  - Asthenia [Recovering/Resolving]
  - Abulia [Recovering/Resolving]

NARRATIVE: CASE EVENT DATE: 20171103
